FAERS Safety Report 4840332-6 (Version None)
Quarter: 2005Q4

REPORT INFORMATION
  Report Type: 
  Country: None (occurrence: None)
  Receive Date: 20051031
  Receipt Date: 20050907
  Transmission Date: 20060501
  Serious: Yes (Other)
  Sender: FDA-Public Use
  Company Number: 200515899US

PATIENT
  Age: 34 Year
  Sex: Female
  Weight: 99 kg

DRUGS (7)
  1. KETEK [Suspect]
     Indication: EAR INFECTION
     Dosage: 400 (2TABS) X 10 DAYS MG QD PO
     Route: 048
     Dates: start: 20050713, end: 20050701
  2. LEVOTHYROXINE SODIUM [Concomitant]
  3. PAXIL [Concomitant]
  4. LEVOTHYROXINE SODIUM [Concomitant]
  5. CALCIUM GLUCONATE [Concomitant]
  6. MULTI-VITAMIN [Concomitant]
  7. LORATADINE (CLARITIN) [Concomitant]

REACTIONS (2)
  - TIC [None]
  - VISION BLURRED [None]
